FAERS Safety Report 20204191 (Version 1)
Quarter: 2021Q4

REPORT INFORMATION
  Report Type: Spontaneous
  Country: IN (occurrence: IN)
  Receive Date: 20211220
  Receipt Date: 20211220
  Transmission Date: 20220303
  Serious: Yes (Other)
  Sender: FDA-Public Use
  Company Number: IN-CIPLA LTD.-2021IN08077

PATIENT

DRUGS (6)
  1. METOPROLOL [Suspect]
     Active Substance: METOPROLOL
     Indication: Angina pectoris
     Dosage: 50 MILLIGRAM, BID
     Route: 065
  2. ATORVASTATIN [Suspect]
     Active Substance: ATORVASTATIN
     Indication: Angina pectoris
     Dosage: 80 MILLIGRAM, QD
     Route: 065
  3. RANOLAZINE [Suspect]
     Active Substance: RANOLAZINE
     Indication: Angina pectoris
     Dosage: 500 MILLIGRAM, BID
     Route: 065
  4. NITROGLYCERIN [Suspect]
     Active Substance: NITROGLYCERIN
     Indication: Angina pectoris
     Dosage: 2.6 MILLIGRAM, BID
     Route: 065
  5. NICORANDIL [Suspect]
     Active Substance: NICORANDIL
     Indication: Angina pectoris
     Dosage: 5 MILLIGRAM, BID
     Route: 065
  6. ASPIRIN [Suspect]
     Active Substance: ASPIRIN
     Indication: Angina pectoris
     Dosage: 75 MILLIGRAM, QD
     Route: 065

REACTIONS (1)
  - Angina pectoris [Unknown]
